FAERS Safety Report 10169936 (Version 2)
Quarter: 2014Q2

REPORT INFORMATION
  Report Type: Spontaneous
  Country: GB (occurrence: GB)
  Receive Date: 20140513
  Receipt Date: 20140627
  Transmission Date: 20141212
  Serious: Yes (Other)
  Sender: FDA-Public Use
  Company Number: GB-JNJFOC-20140503376

PATIENT
  Age: 13 Year
  Sex: Male
  Weight: 47.7 kg

DRUGS (3)
  1. REMICADE [Suspect]
     Indication: CROHN^S DISEASE
     Dosage: DOSE: 300 UNITS UNSPECIFIED
     Route: 042
     Dates: start: 20140417, end: 20140417
  2. HYDROCORTISONE [Concomitant]
     Indication: PREMEDICATION
     Route: 065
  3. CHLORPHENAMINE [Concomitant]
     Indication: PREMEDICATION
     Route: 065

REACTIONS (3)
  - Wheezing [Recovered/Resolved]
  - Generalised erythema [Recovered/Resolved]
  - Infusion related reaction [Recovered/Resolved]
